FAERS Safety Report 24385157 (Version 5)
Quarter: 2025Q3

REPORT INFORMATION
  Report Type: Report from Study
  Country: US (occurrence: US)
  Receive Date: 20241001
  Receipt Date: 20250908
  Transmission Date: 20251020
  Serious: No
  Sender: SUNOVION
  Company Number: US-SUMITOMO PHARMA SWITZERLAND GMBH-2024SPA003250

PATIENT
  Age: 64 Year
  Sex: Male

DRUGS (7)
  1. ORGOVYX [Suspect]
     Active Substance: RELUGOLIX
     Indication: Prostate cancer
     Dosage: 360 MG, SINGLE
     Route: 048
     Dates: start: 202409, end: 202409
  2. ORGOVYX [Suspect]
     Active Substance: RELUGOLIX
     Dosage: 120 MG, QD
     Route: 048
     Dates: start: 202409
  3. METOPROLOL [Concomitant]
     Active Substance: METOPROLOL
  4. MONTELUKAST [Concomitant]
     Active Substance: MONTELUKAST
  5. TIZANIDINE [Concomitant]
     Active Substance: TIZANIDINE
  6. IBUPROFEN [Concomitant]
     Active Substance: IBUPROFEN
  7. NUBEQA [Concomitant]
     Active Substance: DAROLUTAMIDE
     Indication: Prostate cancer
     Dosage: 300 MG, BID
     Route: 048

REACTIONS (9)
  - Balance disorder [Unknown]
  - Feeling drunk [Unknown]
  - Hypoaesthesia [Unknown]
  - Hot flush [Unknown]
  - Fatigue [Unknown]
  - Asthenia [Unknown]
  - Pain in extremity [Unknown]
  - Myalgia [Unknown]
  - Back pain [Unknown]
